FAERS Safety Report 11179976 (Version 1)
Quarter: 2015Q2

REPORT INFORMATION
  Report Type: Spontaneous
  Country: US (occurrence: US)
  Receive Date: 20150611
  Receipt Date: 20150611
  Transmission Date: 20150821
  Serious: No
  Sender: FDA-Public Use
  Company Number: US-TEVA-568170USA

PATIENT
  Age: 55 Year
  Sex: Female

DRUGS (2)
  1. CAPECITABINE. [Suspect]
     Active Substance: CAPECITABINE
     Indication: BREAST CANCER FEMALE
     Dosage: 3000 MILLIGRAM DAILY; TAKE 3 TABLETS (1500 MG) BY MOUTH TWICE A DAY FOR 14 DAYS
     Route: 048
     Dates: start: 20150129
  2. CAPECITABINE. [Suspect]
     Active Substance: CAPECITABINE
     Indication: BONE CANCER

REACTIONS (2)
  - Neuropathy peripheral [Recovered/Resolved]
  - Neuralgia [Recovered/Resolved]
